FAERS Safety Report 4590116-1 (Version None)
Quarter: 2005Q1

REPORT INFORMATION
  Report Type: 
  Country: None (occurrence: None)
  Receive Date: 20050217
  Receipt Date: 20050217
  Transmission Date: 20050727
  Serious: Yes (Death)
  Sender: FDA-Public Use
  Company Number: None

PATIENT
  Age: 38 Year
  Sex: Male
  Weight: 68.0396 kg

DRUGS (1)
  1. SORIATANE [Suspect]
     Indication: PSORIASIS
     Dosage: QD 10 MG PO
     Route: 048
     Dates: start: 20041023

REACTIONS (4)
  - CONTRAINDICATION TO MEDICAL TREATMENT [None]
  - DIALYSIS [None]
  - HEPATIC FAILURE [None]
  - INFLUENZA LIKE ILLNESS [None]
